FAERS Safety Report 10005677 (Version 2)
Quarter: 2014Q1

REPORT INFORMATION
  Report Type: Spontaneous
  Country: US (occurrence: US)
  Receive Date: 20140313
  Receipt Date: 20140326
  Transmission Date: 20141002
  Serious: No
  Sender: FDA-Public Use
  Company Number: US-BIOGENIDEC-2014BI021255

PATIENT
  Age: 65 Year
  Sex: Male

DRUGS (3)
  1. AVONEX [Concomitant]
     Indication: MULTIPLE SCLEROSIS
     Route: 030
  2. AVONEX [Concomitant]
     Indication: MULTIPLE SCLEROSIS
     Route: 030
  3. TECFIDERA [Suspect]
     Indication: MULTIPLE SCLEROSIS
     Route: 048
     Dates: start: 20130613, end: 201402

REACTIONS (7)
  - Fatigue [Unknown]
  - Pain in extremity [Unknown]
  - Constipation [Unknown]
  - Underdose [Not Recovered/Not Resolved]
  - Abdominal tenderness [Unknown]
  - Abdominal pain [Unknown]
  - Flushing [Unknown]
